FAERS Safety Report 12531027 (Version 1)
Quarter: 2016Q3

REPORT INFORMATION
  Report Type: Spontaneous
  Country: US (occurrence: None)
  Receive Date: 20160705
  Receipt Date: 20160705
  Transmission Date: 20161109
  Serious: Yes (Other)
  Sender: FDA-Public Use
  Company Number: None

PATIENT
  Age: 63 Year
  Sex: Male
  Weight: 88.45 kg

DRUGS (7)
  1. METFORMIN [Concomitant]
     Active Substance: METFORMIN HYDROCHLORIDE
  2. AMLODIPINE [Concomitant]
     Active Substance: AMLODIPINE BESYLATE
  3. MULTI-VITAMIN [Concomitant]
     Active Substance: .ALPHA.-TOCOPHEROL ACETATE, DL-\ASCORBIC ACID\CYANOCOBALAMIN\FLUORIDE ION\FOLIC ACID\NIACIN\PYRIDOXINE\RIBOFLAVIN\THIAMINE\VITAMIN A\VITAMIN D
  4. OMEPRIZOLE [Concomitant]
  5. ZOLPIDEM [Concomitant]
     Active Substance: ZOLPIDEM\ZOLPIDEM TARTRATE
  6. BIOTIN [Concomitant]
     Active Substance: BIOTIN
  7. BACTRACIN ZINC OINTMENT USP, 500 500 UNITS PER GRAM [Suspect]
     Active Substance: BACITRACIN ZINC
     Indication: ARTHROPOD BITE
     Dosage: EVERY 12 HOURS  APPLIED TO A SURFACE, USUALLY THE SKIN
     Route: 061
     Dates: start: 20160606, end: 20160609

REACTIONS (3)
  - Blister [None]
  - Dermatitis [None]
  - Rash [None]

NARRATIVE: CASE EVENT DATE: 20160606
